FAERS Safety Report 21354300 (Version 4)
Quarter: 2022Q4

REPORT INFORMATION
  Report Type: Spontaneous
  Country: AR (occurrence: AR)
  Receive Date: 20220920
  Receipt Date: 20221109
  Transmission Date: 20230112
  Serious: Yes (Other)
  Sender: FDA-Public Use
  Company Number: AR-ORGANON-O2209ARG000913

PATIENT
  Sex: Female
  Weight: 63 kg

DRUGS (1)
  1. ETONOGESTREL [Suspect]
     Active Substance: ETONOGESTREL
     Dosage: 1 IMPLANT
     Route: 059
     Dates: start: 20211216, end: 20211223

REACTIONS (4)
  - Implant site necrosis [Unknown]
  - Device related infection [Unknown]
  - Implant site ulcer [Unknown]
  - Implant site scar [Not Recovered/Not Resolved]

NARRATIVE: CASE EVENT DATE: 20211201
